FAERS Safety Report 6848419-3 (Version None)
Quarter: 2010Q3

REPORT INFORMATION
  Report Type: 
  Country: None (occurrence: None)
  Receive Date: 20100716
  Receipt Date: 20100713
  Transmission Date: 20110219
  Serious: Yes (Other)
  Sender: FDA-Public Use
  Company Number: US-CEPHALON-2010003760

PATIENT
  Age: 48 Year
  Sex: Male
  Weight: 68 kg

DRUGS (3)
  1. PROVIGIL [Suspect]
     Indication: FATIGUE
     Route: 048
     Dates: start: 20100708, end: 20100711
  2. FLUOXETINE HCL [Concomitant]
     Dates: start: 20080701
  3. CLONAZEPAM [Concomitant]
     Dates: start: 20100501

REACTIONS (1)
  - ANAPHYLACTIC REACTION [None]
